FAERS Safety Report 16487765 (Version 1)
Quarter: 2019Q3

REPORT INFORMATION
  Report Type: Spontaneous
  Country: AL (occurrence: AL)
  Receive Date: 20190626
  Receipt Date: 20190626
  Transmission Date: 20191004
  Serious: Yes (Other)
  Sender: FDA-Public Use
  Company Number: None

PATIENT
  Age: 75 Year
  Sex: Male
  Weight: 58.5 kg

DRUGS (1)
  1. SILDENAFIL 100MG TABLETS USP [Suspect]
     Active Substance: SILDENAFIL
     Indication: ERECTILE DYSFUNCTION
     Dosage: ?          QUANTITY:30 TABLET(S);?
     Route: 048
     Dates: start: 20190626, end: 20190626

REACTIONS (4)
  - Headache [None]
  - Blindness unilateral [None]
  - Blindness transient [None]
  - Dyschromatopsia [None]

NARRATIVE: CASE EVENT DATE: 20190626
